FAERS Safety Report 10230411 (Version 2)
Quarter: 2014Q2

REPORT INFORMATION
  Report Type: Spontaneous
  Country: US (occurrence: US)
  Receive Date: 20140611
  Receipt Date: 20140611
  Transmission Date: 20141212
  Serious: No
  Sender: FDA-Public Use
  Company Number: US-INCYTE CORPORATION-2014IN000170

PATIENT
  Sex: Female

DRUGS (7)
  1. JAKAFI [Suspect]
     Indication: MYELOFIBROSIS
     Dosage: 10 MG, QD
     Route: 048
     Dates: start: 20120330
  2. SYNTHROID [Concomitant]
     Dosage: 50 MCG
  3. ALLOPURINOL [Concomitant]
     Dosage: 100 MG
  4. HYDROCODONE W/PARACETAMOL [Concomitant]
  5. MECLIZINE                          /00072801/ [Concomitant]
  6. RESTASIS [Concomitant]
  7. AZASITE [Concomitant]

REACTIONS (2)
  - Adverse drug reaction [Unknown]
  - Dizziness [Unknown]
